FAERS Safety Report 5974184-8 (Version None)
Quarter: 2008Q4

REPORT INFORMATION
  Report Type: 
  Country: None (occurrence: None)
  Receive Date: 20081125
  Receipt Date: 20081117
  Transmission Date: 20090506
  Serious: Yes (Hospitalization)
  Sender: FDA-Public Use
  Company Number: 2008AL011823

PATIENT
  Age: 6 Year
  Sex: Male

DRUGS (1)
  1. PHENYTOIN [Suspect]
     Indication: CONVULSION PROPHYLAXIS

REACTIONS (9)
  - AGRANULOCYTOSIS [None]
  - BONE MARROW TRANSPLANT REJECTION [None]
  - COOMBS POSITIVE HAEMOLYTIC ANAEMIA [None]
  - DRUG HYPERSENSITIVITY [None]
  - HEPATITIS [None]
  - LYMPHADENOPATHY [None]
  - PERIORBITAL OEDEMA [None]
  - PYREXIA [None]
  - RASH [None]
